FAERS Safety Report 6123564-9 (Version None)
Quarter: 2009Q1

REPORT INFORMATION
  Report Type: 
  Country: None (occurrence: None)
  Receive Date: 20090318
  Receipt Date: 20090318
  Transmission Date: 20090719
  Serious: No
  Sender: FDA-Public Use
  Company Number: None

PATIENT
  Sex: Male

DRUGS (2)
  1. DEPAKOTE [Suspect]
     Indication: INTERMITTENT EXPLOSIVE DISORDER
     Dosage: 500 MG TID ORAL
     Route: 048
  2. DEPAKOTE [Suspect]
     Indication: INTERMITTENT EXPLOSIVE DISORDER
     Dosage: 250 MG QHS ORAL
     Route: 048

REACTIONS (1)
  - DROOLING [None]
